FAERS Safety Report 6535485-8 (Version None)
Quarter: 2010Q1

REPORT INFORMATION
  Report Type: 
  Country: None (occurrence: None)
  Receive Date: 20100105
  Receipt Date: 20091223
  Transmission Date: 20100710
  Serious: Yes (Hospitalization)
  Sender: FDA-Public Use
  Company Number: 003619

PATIENT
  Sex: Male

DRUGS (1)
  1. CIMZIA [Suspect]
     Dosage: SUBCUTANEOUS
     Route: 058
     Dates: start: 20090212

REACTIONS (3)
  - DETOXIFICATION [None]
  - EMOTIONAL DISORDER [None]
  - PHYSICAL EXAMINATION ABNORMAL [None]
